FAERS Safety Report 17858404 (Version 2)
Quarter: 2020Q2

REPORT INFORMATION
  Report Type: Report from Study
  Country: None (occurrence: US)
  Receive Date: 20200604
  Receipt Date: 20200605
  Transmission Date: 20200714
  Serious: No
  Sender: FDA-Public Use
  Company Number: US-US WORLDMEDS, LLC-USW201908-001452

PATIENT
  Age: 70 Year
  Sex: Female
  Weight: 83.91 kg

DRUGS (9)
  1. SINEMET CR [Concomitant]
     Active Substance: CARBIDOPA\LEVODOPA
  2. LEXAPRO [Concomitant]
     Active Substance: ESCITALOPRAM OXALATE
  3. KLONOPIN [Concomitant]
     Active Substance: CLONAZEPAM
  4. CARBIDOPA. [Concomitant]
     Active Substance: CARBIDOPA
  5. PROPRANOLOL [Concomitant]
     Active Substance: PROPRANOLOL HYDROCHLORIDE
  6. APOKYN [Suspect]
     Active Substance: APOMORPHINE HYDROCHLORIDE
     Indication: PARKINSON^S DISEASE
     Route: 058
     Dates: start: 20190801, end: 20190805
  7. SINEMET [Concomitant]
     Active Substance: CARBIDOPA\LEVODOPA
  8. NEUPRO [Concomitant]
     Active Substance: ROTIGOTINE
  9. XANAX [Concomitant]
     Active Substance: ALPRAZOLAM

REACTIONS (5)
  - Hyperhidrosis [Recovered/Resolved]
  - Asthenia [Recovered/Resolved]
  - Feeling abnormal [Recovered/Resolved]
  - Blood pressure decreased [Recovered/Resolved]
  - Musculoskeletal stiffness [Recovered/Resolved]

NARRATIVE: CASE EVENT DATE: 20190805
